FAERS Safety Report 23653860 (Version 1)
Quarter: 2024Q1

REPORT INFORMATION
  Report Type: Spontaneous
  Country: US (occurrence: None)
  Receive Date: 20240319
  Receipt Date: 20240319
  Transmission Date: 20240410
  Serious: No
  Sender: FDA-Public Use
  Company Number: None

PATIENT
  Sex: Female

DRUGS (10)
  1. VIGABATRIN [Suspect]
     Active Substance: VIGABATRIN
     Indication: Tuberous sclerosis complex
     Dosage: FREQUENCY : TWICE A DAY;?
     Route: 048
  2. CLONAZEPAM [Concomitant]
     Active Substance: CLONAZEPAM
  3. ONDANSETRON HYDROCHLORIDE [Concomitant]
     Active Substance: ONDANSETRON HYDROCHLORIDE
  4. EVEROLIMUS [Concomitant]
     Active Substance: EVEROLIMUS
  5. CLOBAZAM [Concomitant]
     Active Substance: CLOBAZAM
  6. ALBUTEROL [Concomitant]
     Active Substance: ALBUTEROL
  7. PEPCID [Concomitant]
     Active Substance: FAMOTIDINE
  8. KEPPRA [Concomitant]
     Active Substance: LEVETIRACETAM
  9. CETIRIZINE HCL CHILDRENS [Concomitant]
  10. VALTOCO [Concomitant]
     Active Substance: DIAZEPAM

REACTIONS (5)
  - Nausea [None]
  - Abdominal pain upper [None]
  - Fatigue [None]
  - Stomatitis [None]
  - Nonspecific reaction [None]
